FAERS Safety Report 6232315-9 (Version None)
Quarter: 2009Q2

REPORT INFORMATION
  Report Type: 
  Country: None (occurrence: None)
  Receive Date: 20090615
  Receipt Date: 20090608
  Transmission Date: 20091009
  Serious: Yes (Hospitalization, Other)
  Sender: FDA-Public Use
  Company Number: 2009SP009899

PATIENT
  Age: 54 Year
  Sex: Female

DRUGS (5)
  1. PEG-INTRON [Suspect]
     Indication: HEPATITIS C
     Dosage: 150 MCG; QW; SC
     Route: 058
     Dates: start: 20080627
  2. RIBAVIRIN [Suspect]
     Indication: HEPATITIS C
     Dosage: 200 MG; BID; PO
     Route: 048
     Dates: start: 20080627
  3. PROZAC [Concomitant]
  4. XANAX [Concomitant]
  5. SYNTHROID [Concomitant]

REACTIONS (7)
  - BRONCHITIS [None]
  - EAR INFECTION [None]
  - HEADACHE [None]
  - HORDEOLUM [None]
  - PERIORBITAL CELLULITIS [None]
  - PNEUMONIA STREPTOCOCCAL [None]
  - WHITE BLOOD CELL COUNT DECREASED [None]
